FAERS Safety Report 9168007 (Version 2)
Quarter: 2013Q1

REPORT INFORMATION
  Report Type: Spontaneous
  Country: US (occurrence: None)
  Receive Date: 20130227
  Receipt Date: 20130311
  Transmission Date: 20140127
  Serious: Yes (Disabling, Other)
  Sender: FDA-Public Use
  Company Number: 2013034804

PATIENT
  Age: 25 Year
  Sex: Female

DRUGS (10)
  1. INTRAVENOUS IMMUNOGLOBULIN (IVIG) (IMMUNE GLOBULIN INTRAVENOUS (HUMAN) 10% LIQUID) [Suspect]
     Indication: DERMATOMYOSITIS
  2. HP ACTHAR [Suspect]
     Dosage: (80 U ONCE A WEEK INCREASED TO 80 U TWICE A WEEK)
  3. AZATHIOPRINE [Suspect]
  4. RITUXIMAB (RITUXIMAB) [Suspect]
     Dosage: (375 MG/M2 FOR TWO DOSES AND THEN A SINGLE DOSE EVERY 3 MONTHS FOR 12 MONTHS)
  5. CYCLOSPORINE (CICLOSPORIN) [Suspect]
  6. METHOTREXATE (METHOTREXATE) [Suspect]
  7. PREDNISONE (PREDNISONE) [Suspect]
     Dosage: (UP TO 100 MG/DAY,)
  8. MYCOPHENOLATE MOFETIL (MYCOPHENOLATE MOFETIL) [Suspect]
  9. METHYLPREDNISOLONE [Suspect]
  10. TACROLIMUS (TACROLIMUS) [Suspect]

REACTIONS (12)
  - Cushingoid [None]
  - Palpitations [None]
  - Blood creatine phosphokinase increased [None]
  - Inflammation [None]
  - Asthenia [None]
  - Walking aid user [None]
  - No therapeutic response [None]
  - Muscle atrophy [None]
  - Dermatomyositis [None]
  - Condition aggravated [None]
  - Off label use [None]
  - Muscular weakness [None]
